FAERS Safety Report 9646189 (Version 4)
Quarter: 2013Q4

REPORT INFORMATION
  Report Type: Spontaneous
  Country: US (occurrence: US)
  Receive Date: 20131025
  Receipt Date: 20131127
  Transmission Date: 20140711
  Serious: Yes (Life-Threatening, Hospitalization, Disabling, Other)
  Sender: FDA-Public Use
  Company Number: US-009507513-1310USA009932

PATIENT
  Age: 65 Year
  Sex: Male
  Weight: 88.89 kg

DRUGS (1)
  1. JANUVIA [Suspect]
     Indication: TYPE 2 DIABETES MELLITUS
     Dosage: UNK
     Route: 048
     Dates: start: 20111116

REACTIONS (3)
  - Medullary thyroid cancer [Recovered/Resolved]
  - Metastases to lymph nodes [Recovered/Resolved]
  - Thyroidectomy [Recovered/Resolved]
